FAERS Safety Report 18610371 (Version 7)
Quarter: 2021Q1

REPORT INFORMATION
  Report Type: Spontaneous
  Country: PL (occurrence: PL)
  Receive Date: 20201214
  Receipt Date: 20210206
  Transmission Date: 20210419
  Serious: Yes (Other)
  Sender: FDA-Public Use
  Company Number: PL-009507513-2012POL003343

PATIENT
  Age: 5 Month
  Sex: Female

DRUGS (1)
  1. DIPROSALIC [Suspect]
     Active Substance: BETAMETHASONE DIPROPIONATE
     Dosage: ON HER SCALP
     Route: 063
     Dates: start: 202010, end: 202012

REACTIONS (5)
  - Haematochezia [Recovered/Resolved]
  - Weight gain poor [Not Recovered/Not Resolved]
  - Expired product administered [Unknown]
  - Cough [Unknown]
  - Exposure via breast milk [Unknown]

NARRATIVE: CASE EVENT DATE: 2020
